FAERS Safety Report 6552144-6 (Version None)
Quarter: 2010Q1

REPORT INFORMATION
  Report Type: 
  Country: None (occurrence: None)
  Receive Date: 20100126
  Receipt Date: 20100119
  Transmission Date: 20100710
  Serious: Yes (Hospitalization, Other)
  Sender: FDA-Public Use
  Company Number: US-BAYER-US-2006-035786

PATIENT
  Age: 55 Year
  Sex: Female
  Weight: 77 kg

DRUGS (25)
  1. BETASERON [Suspect]
     Indication: SECONDARY PROGRESSIVE MULTIPLE SCLEROSIS
     Dosage: TOTAL DAILY DOSE: 8 MIU
     Route: 058
     Dates: start: 20051115, end: 20080521
  2. BETASERON [Suspect]
     Dosage: TOTAL DAILY DOSE: 8 MIU
     Route: 058
     Dates: start: 20090117
  3. BETASERON [Suspect]
     Dosage: TOTAL DAILY DOSE: 8 MIU
     Route: 058
  4. BETASERON [Suspect]
     Dosage: TOTAL DAILY DOSE: 8 MIU
     Route: 058
  5. BETASERON [Suspect]
     Dosage: TOTAL DAILY DOSE: 8 MIU
     Route: 058
  6. VISIPAQUE [Suspect]
     Indication: COMPUTERISED TOMOGRAM
     Dosage: UNK, UNK
     Dates: start: 20060615
  7. TOPAMAX [Concomitant]
     Dosage: TOTAL DAILY DOSE: 150 MG
     Route: 048
  8. PAXIL [Concomitant]
     Indication: DEPRESSION
     Dosage: TOTAL DAILY DOSE: 40 MG
     Route: 048
     Dates: start: 20010201
  9. FOSAMAX [Concomitant]
     Indication: OSTEOPOROSIS
     Dosage: TOTAL DAILY DOSE: 10 MG
     Route: 048
     Dates: start: 20020101
  10. PROVIGIL [Concomitant]
     Indication: MULTIPLE SCLEROSIS
     Dosage: TOTAL DAILY DOSE: 200 MG
     Route: 048
     Dates: start: 20040101
  11. TRAZODIL [Concomitant]
     Indication: DEPRESSION
     Dosage: TOTAL DAILY DOSE: 100 MG
     Route: 048
  12. BACLOFEN [Concomitant]
     Indication: MULTIPLE SCLEROSIS
     Dosage: TOTAL DAILY DOSE: 60 MG
  13. TRILEPTAL [Concomitant]
     Indication: MULTIPLE SCLEROSIS
     Dosage: TOTAL DAILY DOSE: 150 MG
     Dates: start: 20060401
  14. ACIPHEX [Concomitant]
     Indication: GASTROOESOPHAGEAL REFLUX DISEASE
     Dosage: TOTAL DAILY DOSE: 20 MG
     Route: 048
  15. CALCIUM [Concomitant]
     Indication: OSTEOPOROSIS
     Dosage: TOTAL DAILY DOSE: 1800 MG
     Route: 048
     Dates: start: 20010101
  16. VITAMIN D [Concomitant]
     Indication: OSTEOPOROSIS
     Dosage: TOTAL DAILY DOSE: 400 MG
     Route: 048
     Dates: start: 20010101
  17. FEMHRT [Concomitant]
     Indication: MENOPAUSE
     Dosage: TOTAL DAILY DOSE: 1 MG
     Route: 048
     Dates: start: 20000101
  18. EPIPEN [Concomitant]
     Indication: ANAPHYLACTIC REACTION
     Dosage: UNK, AS REQ'D
     Route: 058
     Dates: start: 20050101
  19. ZYRTEC [Concomitant]
     Indication: MULTIPLE ALLERGIES
     Dosage: TOTAL DAILY DOSE: 10 MG
     Dates: start: 20050101
  20. COUMADIN [Concomitant]
  21. PROVIGIL [Concomitant]
  22. NEURONTIN [Concomitant]
  23. OS-CAL [Concomitant]
  24. VITAMIN C [Concomitant]
  25. MICINEX [Concomitant]

REACTIONS (37)
  - ANTIPHOSPHOLIPID ANTIBODIES POSITIVE [None]
  - BALANCE DISORDER [None]
  - BURNING SENSATION [None]
  - CHEST DISCOMFORT [None]
  - CHEST PAIN [None]
  - COAGULATION FACTOR VIII LEVEL INCREASED [None]
  - COLITIS [None]
  - COMPUTERISED TOMOGRAM THORAX ABNORMAL [None]
  - CONSTIPATION [None]
  - CONTRAST MEDIA REACTION [None]
  - COUGH [None]
  - DEEP VEIN THROMBOSIS [None]
  - DERMATITIS [None]
  - DIARRHOEA [None]
  - DYSPHAGIA [None]
  - DYSPHONIA [None]
  - ERYTHEMA [None]
  - FATIGUE [None]
  - HAEMOPTYSIS [None]
  - HAEMORRHOIDS [None]
  - HERPES ZOSTER [None]
  - HYPERHIDROSIS [None]
  - INFLAMMATORY BOWEL DISEASE [None]
  - INJECTION SITE PAIN [None]
  - IRON DEFICIENCY ANAEMIA [None]
  - MUCOUS STOOLS [None]
  - NAUSEA [None]
  - OESOPHAGEAL STENOSIS [None]
  - PERIARTHRITIS [None]
  - POLYP [None]
  - PRURITUS [None]
  - RASH ERYTHEMATOUS [None]
  - RECTAL ABSCESS [None]
  - RECTAL HAEMORRHAGE [None]
  - RECTAL PROLAPSE [None]
  - SWELLING FACE [None]
  - WEIGHT DECREASED [None]
